FAERS Safety Report 7571939-3 (Version None)
Quarter: 2011Q2

REPORT INFORMATION
  Report Type: 
  Country: None (occurrence: None)
  Receive Date: 20110624
  Receipt Date: 20110210
  Transmission Date: 20111010
  Serious: No
  Sender: FDA-Public Use
  Company Number: A0912914A

PATIENT
  Age: 65 Year
  Sex: Male

DRUGS (6)
  1. LISINOPRIL [Concomitant]
  2. LOVASTATIN [Concomitant]
  3. GEMFIBROZIL [Concomitant]
  4. GLYBURIDE [Concomitant]
  5. VERAMYST [Suspect]
     Dosage: 2SPR SINGLE DOSE
     Route: 045
     Dates: start: 20110210
  6. ALLOPURINOL [Concomitant]

REACTIONS (1)
  - BLOOD GLUCOSE INCREASED [None]
